FAERS Safety Report 21375510 (Version 1)
Quarter: 2022Q3

REPORT INFORMATION
  Report Type: Spontaneous
  Country: NL (occurrence: NL)
  Receive Date: 20220926
  Receipt Date: 20220926
  Transmission Date: 20221026
  Serious: Yes (Other)
  Sender: FDA-Public Use
  Company Number: None

PATIENT
  Sex: Female
  Weight: 65 kg

DRUGS (1)
  1. RIZATRIPTAN [Suspect]
     Active Substance: RIZATRIPTAN
     Indication: Migraine
     Dosage: 10 MG (ZO NODIG 1 TABLET)
     Route: 065
     Dates: start: 20210326, end: 20220906

REACTIONS (3)
  - Hypertensive crisis [Recovered/Resolved]
  - Restlessness [Unknown]
  - Tachycardia [Unknown]
